FAERS Safety Report 7230599-1 (Version None)
Quarter: 2011Q1

REPORT INFORMATION
  Report Type: 
  Country: None (occurrence: None)
  Receive Date: 20110118
  Receipt Date: 20110111
  Transmission Date: 20110831
  Serious: Yes (Death, Hospitalization)
  Sender: FDA-Public Use
  Company Number: PHHY2010US72806

PATIENT
  Sex: Male
  Weight: 92.063 kg

DRUGS (10)
  1. VITAMIN B-12 [Concomitant]
  2. FUROSEMIDE [Concomitant]
  3. LISINOPRIL AND HYDROCHLOROTHIAZIDE [Concomitant]
  4. HYDROXYZINE [Concomitant]
  5. CALCIUM [Concomitant]
  6. EXJADE [Suspect]
     Indication: IRON METABOLISM DISORDER
     Dosage: 1000 MG, QD
     Route: 048
     Dates: start: 20100615, end: 20101101
  7. CALCITRIOL [Concomitant]
  8. FOLIC ACID [Concomitant]
  9. OMEPRAZOLE [Concomitant]
  10. KETOCONAZOLE [Concomitant]
     Dosage: UNK
     Dates: start: 20100615

REACTIONS (3)
  - RASH [None]
  - HAEMOGLOBIN DECREASED [None]
  - DEATH [None]
